FAERS Safety Report 22289847 (Version 1)
Quarter: 2023Q2

REPORT INFORMATION
  Report Type: Spontaneous
  Country: US (occurrence: None)
  Receive Date: 20230504
  Receipt Date: 20230504
  Transmission Date: 20230721
  Serious: Yes (Death)
  Sender: FDA-Public Use
  Company Number: None

PATIENT
  Age: 82 Year
  Sex: Female
  Weight: 49.5 kg

DRUGS (1)
  1. GILOTRIF [Suspect]
     Active Substance: AFATINIB
     Indication: Non-small cell lung cancer stage IV
     Dosage: FREQUENCY : DAILY;?
     Route: 048
     Dates: start: 20210708, end: 20230428

REACTIONS (1)
  - Death [None]

NARRATIVE: CASE EVENT DATE: 20230428
